FAERS Safety Report 5851841-5 (Version None)
Quarter: 2008Q3

REPORT INFORMATION
  Report Type: 
  Country: None (occurrence: None)
  Receive Date: 20080819
  Receipt Date: 20080806
  Transmission Date: 20090109
  Serious: Yes (Life-Threatening)
  Sender: FDA-Public Use
  Company Number: 2008AL002255

PATIENT
  Age: 72 Year
  Sex: Male

DRUGS (11)
  1. VERAPAMIL HYDROCHLORIDE [Suspect]
     Indication: ATRIAL FIBRILLATION
     Dosage: 160 MG; QD; PO
     Route: 048
     Dates: start: 20080328, end: 20080331
  2. FELODIPINE [Concomitant]
  3. ACETAMINOPHEN [Concomitant]
  4. TAMSULOSIN HCL [Concomitant]
  5. ACETYLSALICYLIC ACID SRT [Concomitant]
  6. FUROSEMIDE [Concomitant]
  7. SIMVASTATIN [Concomitant]
  8. HUMULIN M3 [Concomitant]
  9. DIGOXIN [Concomitant]
  10. ENOXAPARIN SODIUM [Concomitant]
  11. SALBUTAMOL [Concomitant]

REACTIONS (4)
  - ANGIOEDEMA [None]
  - SWELLING FACE [None]
  - TACHYCARDIA [None]
  - WHEEZING [None]
